FAERS Safety Report 12083133 (Version 1)
Quarter: 2016Q1

REPORT INFORMATION
  Report Type: Spontaneous
  Country: US (occurrence: US)
  Receive Date: 20160217
  Receipt Date: 20160217
  Transmission Date: 20160526
  Serious: No
  Sender: FDA-Public Use
  Company Number: US-ENDO PHARMACEUTICALS INC.-2015-002530

PATIENT
  Age: 42 Year
  Sex: Female
  Weight: 59.02 kg

DRUGS (2)
  1. OXYCODONE HCL 15MG [Suspect]
     Active Substance: OXYCODONE HYDROCHLORIDE
     Indication: PAIN
     Route: 048
  2. PREVENTO [Concomitant]
     Indication: ASTHMA

REACTIONS (4)
  - Dehydration [Unknown]
  - Product packaging quantity issue [Unknown]
  - Drug dose omission [Unknown]
  - Drug withdrawal syndrome [Unknown]

NARRATIVE: CASE EVENT DATE: 20150717
